FAERS Safety Report 4478421-0 (Version None)
Quarter: 2004Q4

REPORT INFORMATION
  Report Type: 
  Country: None (occurrence: None)
  Receive Date: 20041018
  Receipt Date: 20041018
  Transmission Date: 20050328
  Serious: No
  Sender: FDA-Public Use
  Company Number: None

PATIENT
  Age: 78 Year
  Sex: Female
  Weight: 54.4316 kg

DRUGS (1)
  1. VIOXX [Suspect]

REACTIONS (2)
  - ABDOMINAL PAIN [None]
  - ABDOMINAL PAIN UPPER [None]
